FAERS Safety Report 19504823 (Version 1)
Quarter: 2021Q3

REPORT INFORMATION
  Report Type: Spontaneous
  Country: US (occurrence: US)
  Receive Date: 20210708
  Receipt Date: 20210708
  Transmission Date: 20211014
  Serious: Yes (Other)
  Sender: FDA-Public Use
  Company Number: US-SA-2021SA207010

PATIENT
  Age: 35 Year
  Sex: Female

DRUGS (25)
  1. AMITRIPTYLINE HYDROCHLORIDE. [Suspect]
     Active Substance: AMITRIPTYLINE HYDROCHLORIDE
     Indication: ANXIETY
  2. LURASIDONE [Concomitant]
     Active Substance: LURASIDONE
     Indication: PERSISTENT GENITAL AROUSAL DISORDER
     Dosage: 20 MG
     Dates: start: 201803
  3. ZOLPIDEM TARTRATE. [Suspect]
     Active Substance: ZOLPIDEM TARTRATE
     Indication: PERSISTENT GENITAL AROUSAL DISORDER
     Dosage: UNK
     Dates: start: 201806
  4. ZOLPIDEM TARTRATE. [Suspect]
     Active Substance: ZOLPIDEM TARTRATE
     Indication: ANXIETY
  5. DESVENLAFAXINE SUCCINATE. [Suspect]
     Active Substance: DESVENLAFAXINE SUCCINATE
     Indication: PERSISTENT GENITAL AROUSAL DISORDER
  6. VENLAFAXINE HYDROCHLORIDE. [Suspect]
     Active Substance: VENLAFAXINE HYDROCHLORIDE
     Indication: ANXIETY
  7. ALPRAZOLAM. [Suspect]
     Active Substance: ALPRAZOLAM
     Indication: ANXIETY
  8. ESTROGEN [Concomitant]
     Active Substance: ESTROGENS
     Indication: PERSISTENT GENITAL AROUSAL DISORDER
     Dosage: UNK
     Route: 061
     Dates: start: 201803
  9. TRAMADOL. [Concomitant]
     Active Substance: TRAMADOL
     Indication: PERSISTENT GENITAL AROUSAL DISORDER
     Dosage: UNK
     Dates: start: 201803
  10. AMITRIPTYLINE HYDROCHLORIDE. [Suspect]
     Active Substance: AMITRIPTYLINE HYDROCHLORIDE
     Indication: DEPRESSION
  11. BUPROPION. [Suspect]
     Active Substance: BUPROPION
     Indication: DEPRESSION
  12. ETHINYLESTRADIOL;ETONOGESTREL [Suspect]
     Active Substance: ETHINYL ESTRADIOL\ETONOGESTREL
     Indication: PERSISTENT GENITAL AROUSAL DISORDER
     Dosage: UNK
     Dates: start: 201803
  13. LURASIDONE [Concomitant]
     Active Substance: LURASIDONE
     Dosage: 40 MG
     Dates: start: 201803
  14. DESVENLAFAXINE SUCCINATE. [Suspect]
     Active Substance: DESVENLAFAXINE SUCCINATE
     Indication: DEPRESSION
     Dosage: UNK
     Dates: start: 201803
  15. DESVENLAFAXINE SUCCINATE. [Suspect]
     Active Substance: DESVENLAFAXINE SUCCINATE
     Indication: ANXIETY
  16. SERTRALINE [Suspect]
     Active Substance: SERTRALINE HYDROCHLORIDE
     Indication: ANXIETY
     Dosage: UNK
     Dates: start: 201806
  17. VARENICLINE [Suspect]
     Active Substance: VARENICLINE
     Indication: PERSISTENT GENITAL AROUSAL DISORDER
     Dosage: UNK
  18. FLUOXETINE [Suspect]
     Active Substance: FLUOXETINE HYDROCHLORIDE
     Indication: DEPRESSION
  19. VENLAFAXINE HYDROCHLORIDE. [Suspect]
     Active Substance: VENLAFAXINE HYDROCHLORIDE
     Indication: DEPRESSION
  20. ALPRAZOLAM. [Suspect]
     Active Substance: ALPRAZOLAM
     Indication: DEPRESSION
  21. TRAZODONE [Concomitant]
     Active Substance: TRAZODONE HYDROCHLORIDE
     Indication: PERSISTENT GENITAL AROUSAL DISORDER
     Dosage: UNK
     Dates: start: 201803
  22. LEVOMILNACIPRAN [Concomitant]
     Active Substance: LEVOMILNACIPRAN
     Indication: ANXIETY
     Dosage: UNK
     Dates: start: 201806
  23. VILAZODONE [Suspect]
     Active Substance: VILAZODONE
     Indication: ANXIETY
     Dosage: UNK
  24. VILAZODONE [Suspect]
     Active Substance: VILAZODONE
     Indication: DEPRESSION
  25. QUETIAPINE. [Concomitant]
     Active Substance: QUETIAPINE
     Indication: PERSISTENT GENITAL AROUSAL DISORDER
     Dosage: UNK
     Dates: start: 201803

REACTIONS (3)
  - Condition aggravated [Recovering/Resolving]
  - Drug ineffective [Unknown]
  - Persistent genital arousal disorder [Recovering/Resolving]

NARRATIVE: CASE EVENT DATE: 201703
